FAERS Safety Report 9915991 (Version 1)
Quarter: 2014Q1

REPORT INFORMATION
  Report Type: Spontaneous
  Country: US (occurrence: US)
  Receive Date: 20140221
  Receipt Date: 20140221
  Transmission Date: 20141002
  Serious: No
  Sender: FDA-Public Use
  Company Number: US-BAYER-2014-026699

PATIENT
  Sex: 0

DRUGS (1)
  1. ADEMPAS [Suspect]
     Indication: PULMONARY ARTERIAL HYPERTENSION
     Dosage: 1 MG, TID
     Route: 048

REACTIONS (3)
  - Dyspnoea [None]
  - Wheezing [None]
  - Oedema [None]
